FAERS Safety Report 7789425-4 (Version None)
Quarter: 2011Q3

REPORT INFORMATION
  Report Type: 
  Country: None (occurrence: None)
  Receive Date: 20110930
  Receipt Date: 20110927
  Transmission Date: 20111222
  Serious: No
  Sender: FDA-Public Use
  Company Number: US-BAYER-2011-092538

PATIENT
  Age: 51 Year
  Sex: Female
  Weight: 65.76 kg

DRUGS (12)
  1. VENLAFAXINE HYDROCHLORIDE [Concomitant]
  2. HYDROCODONE [Concomitant]
  3. RAPAMUNE [Suspect]
     Indication: SARCOMA
     Dosage: 2 MG, QD
     Route: 048
     Dates: start: 20110827, end: 20110927
  4. PREDNISONE [Concomitant]
  5. POTASSIUM CHLORIDE [Concomitant]
  6. MIDODRINE HYDROCHLORIDE [Concomitant]
  7. GABAPENTIN [Concomitant]
  8. IMODIUM [Concomitant]
  9. NEXAVAR [Suspect]
     Indication: SARCOMA
     Dosage: 200 MG, BID
     Route: 048
     Dates: start: 20110827, end: 20110927
  10. KEPPRA [Concomitant]
  11. PROMETHAZINE [Concomitant]
  12. ZOLPIDEM [Concomitant]

REACTIONS (1)
  - URTICARIA [None]
